FAERS Safety Report 8557678-0 (Version None)
Quarter: 2012Q3

REPORT INFORMATION
  Report Type: 
  Country: None (occurrence: None)
  Receive Date: 20120801
  Receipt Date: 20120726
  Transmission Date: 20120928
  Serious: Yes (Death)
  Sender: FDA-Public Use
  Company Number: US-CELGENEUS-163-21880-12073112

PATIENT
  Sex: Male

DRUGS (4)
  1. REVLIMID [Suspect]
     Indication: MULTIPLE MYELOMA
     Dosage: 25 MILLIGRAM
     Route: 048
     Dates: start: 20120615, end: 20120101
  2. CALCIUM [Concomitant]
     Dosage: 500
     Route: 048
  3. STOOL SOFTENER [Concomitant]
     Dosage: 100-30
     Route: 048
  4. VITAMIN D [Concomitant]
     Dosage: 1000 UNIT
     Route: 048

REACTIONS (1)
  - DEATH [None]
